FAERS Safety Report 9501435 (Version 1)
Quarter: 2013Q3

REPORT INFORMATION
  Report Type: Spontaneous
  Country: US (occurrence: US)
  Receive Date: 20130905
  Receipt Date: 20130905
  Transmission Date: 20140515
  Serious: Yes (Hospitalization)
  Sender: FDA-Public Use
  Company Number: US-GLAXOSMITHKLINE-A1040156A

PATIENT
  Age: 87 Year
  Sex: Male

DRUGS (2)
  1. VENTOLIN HFA [Suspect]
     Indication: RESPIRATORY DISORDER
     Dosage: 90MCG UNKNOWN
     Route: 065
  2. ADVAIR [Concomitant]
     Indication: RESPIRATORY DISORDER
     Route: 065

REACTIONS (1)
  - Dyspnoea [Unknown]
